FAERS Safety Report 8287618-3 (Version None)
Quarter: 2012Q2

REPORT INFORMATION
  Report Type: 
  Country: None (occurrence: None)
  Receive Date: 20120416
  Receipt Date: 20120410
  Transmission Date: 20120825
  Serious: Yes (Other)
  Sender: FDA-Public Use
  Company Number: PHHY2012JP030354

PATIENT

DRUGS (1)
  1. CLOZARIL [Suspect]
     Indication: SCHIZOPHRENIA
     Dosage: 200 MG, DAILY

REACTIONS (4)
  - ELECTROENCEPHALOGRAM ABNORMAL [None]
  - ALTERED STATE OF CONSCIOUSNESS [None]
  - FALL [None]
  - VOMITING [None]
